FAERS Safety Report 20894104 (Version 1)
Quarter: 2022Q2

REPORT INFORMATION
  Report Type: Other
  Country: GB (occurrence: GB)
  Receive Date: 20220531
  Receipt Date: 20220531
  Transmission Date: 20220721
  Serious: No
  Sender: FDA-Public Use
  Company Number: GB-MHRA-MED-202205150804032040-YPUUR

PATIENT
  Age: 32 Year
  Sex: Male
  Weight: 73 kg

DRUGS (2)
  1. SERTRALINE [Suspect]
     Active Substance: SERTRALINE HYDROCHLORIDE
     Indication: Depression
     Dosage: 50 MG, QD AT NIGHT
     Route: 065
     Dates: start: 20220311
  2. SERTRALINE [Suspect]
     Active Substance: SERTRALINE HYDROCHLORIDE
     Dosage: 100 MG (INCREASED DOSE)
     Route: 065

REACTIONS (9)
  - Orgasm abnormal [Not Recovered/Not Resolved]
  - Decreased appetite [Not Recovered/Not Resolved]
  - Bruxism [Not Recovered/Not Resolved]
  - Headache [Recovering/Resolving]
  - Abdominal pain upper [Recovered/Resolved]
  - Thirst decreased [Not Recovered/Not Resolved]
  - Night sweats [Not Recovered/Not Resolved]
  - Loss of libido [Not Recovered/Not Resolved]
  - Hyperhidrosis [Not Recovered/Not Resolved]

NARRATIVE: CASE EVENT DATE: 20220312
